FAERS Safety Report 20749953 (Version 1)
Quarter: 2022Q2

REPORT INFORMATION
  Report Type: Spontaneous
  Country: US (occurrence: None)
  Receive Date: 20220425
  Receipt Date: 20220425
  Transmission Date: 20220721
  Serious: Yes (Other)
  Sender: FDA-Public Use
  Company Number: None

PATIENT
  Age: 35 Year
  Sex: Female
  Weight: 97.65 kg

DRUGS (3)
  1. AZITHROMYCIN [Suspect]
     Active Substance: AZITHROMYCIN
     Indication: Sinusitis
     Dosage: OTHER QUANTITY : 6 TABLET(S);?
     Route: 048
     Dates: start: 20220415, end: 20220419
  2. Zoloft 100mg daily [Concomitant]
  3. metoprolol tartrate 25 daily [Concomitant]

REACTIONS (10)
  - Palpitations [None]
  - Chest discomfort [None]
  - Anxiety [None]
  - Tremor [None]
  - Heart rate increased [None]
  - Insomnia [None]
  - Negative thoughts [None]
  - Vision blurred [None]
  - COVID-19 [None]
  - Neurotoxicity [None]

NARRATIVE: CASE EVENT DATE: 20220420
